FAERS Safety Report 15624847 (Version 2)
Quarter: 2018Q4

REPORT INFORMATION
  Report Type: Spontaneous
  Country: IT (occurrence: IT)
  Receive Date: 20181116
  Receipt Date: 20181212
  Transmission Date: 20190205
  Serious: Yes (Hospitalization)
  Sender: FDA-Public Use
  Company Number: IT-ASTRAZENECA-2018SF49737

PATIENT
  Age: 693 Month
  Sex: Female

DRUGS (8)
  1. IRESSA [Suspect]
     Active Substance: GEFITINIB
     Indication: LUNG ADENOCARCINOMA
     Dosage: 250.0MG UNKNOWN
     Route: 048
     Dates: start: 201703
  2. IRESSA [Suspect]
     Active Substance: GEFITINIB
     Indication: METASTASES TO ADRENALS
     Dosage: 250.0MG UNKNOWN
     Route: 048
     Dates: start: 201703
  3. IRESSA [Suspect]
     Active Substance: GEFITINIB
     Indication: METASTASES TO LYMPH NODES
     Dosage: 250.0MG UNKNOWN
     Route: 048
     Dates: start: 20181115
  4. IRESSA [Suspect]
     Active Substance: GEFITINIB
     Indication: METASTASES TO BONE
     Dosage: 250.0MG UNKNOWN
     Route: 048
     Dates: start: 20181115
  5. IRESSA [Suspect]
     Active Substance: GEFITINIB
     Indication: METASTASES TO LYMPH NODES
     Dosage: 250.0MG UNKNOWN
     Route: 048
     Dates: start: 201703
  6. IRESSA [Suspect]
     Active Substance: GEFITINIB
     Indication: METASTASES TO BONE
     Dosage: 250.0MG UNKNOWN
     Route: 048
     Dates: start: 201703
  7. IRESSA [Suspect]
     Active Substance: GEFITINIB
     Indication: METASTASES TO ADRENALS
     Dosage: 250.0MG UNKNOWN
     Route: 048
     Dates: start: 20181115
  8. IRESSA [Suspect]
     Active Substance: GEFITINIB
     Indication: LUNG ADENOCARCINOMA
     Dosage: 250.0MG UNKNOWN
     Route: 048
     Dates: start: 20181115

REACTIONS (6)
  - Mycobacterium tuberculosis complex test positive [Unknown]
  - Headache [Unknown]
  - Cough [Unknown]
  - Nausea [Unknown]
  - Blood uric acid increased [Unknown]
  - BK virus infection [Unknown]

NARRATIVE: CASE EVENT DATE: 201710
